FAERS Safety Report 5029274-3 (Version None)
Quarter: 2006Q2

REPORT INFORMATION
  Report Type: 
  Country: None (occurrence: None)
  Receive Date: 20060619
  Receipt Date: 20060607
  Transmission Date: 20061013
  Serious: Yes (Death, Other)
  Sender: FDA-Public Use
  Company Number: CH-BOEHRINGER INGELHEIM PHARMACEUTICALS, INC.-2006-DE-02942GD

PATIENT

DRUGS (1)
  1. TRIOMUNE [Suspect]
     Indication: HIV INFECTION
     Dosage: LEAD-IN DOSING OF NVP 200 MG DURING THE FIRST 15 DAYS, FOLLOWED BY A FULL DOSE ESCALATION (400 MG/DA

REACTIONS (6)
  - DEATH [None]
  - HEPATOTOXICITY [None]
  - LIPODYSTROPHY ACQUIRED [None]
  - NEUROPATHY [None]
  - SKIN TOXICITY [None]
  - TUBERCULOSIS [None]
